FAERS Safety Report 5195764-6 (Version None)
Quarter: 2006Q4

REPORT INFORMATION
  Report Type: 
  Country: None (occurrence: None)
  Receive Date: 20061227
  Receipt Date: 20061227
  Transmission Date: 20070319
  Serious: Yes (Hospitalization)
  Sender: FDA-Public Use
  Company Number: None

PATIENT
  Sex: Male
  Weight: 75.7507 kg

DRUGS (2)
  1. SODIUM PHOSPHATE /  3 MM PER ML  /  AMERICAN REGENT [Suspect]
     Indication: MALNUTRITION
     Dosage: 37.5 MM   DAILY   IV
     Route: 042
     Dates: start: 20061107, end: 20061113
  2. POTASSIUM PHOSPHATE  /  3MM PER ML  /  AMERICAN REGENT [Suspect]
     Indication: MALNUTRITION
     Dosage: 34.1 MM   DAILY   IV
     Route: 042
     Dates: start: 20061107, end: 20061113

REACTIONS (3)
  - BLOOD PHOSPHORUS INCREASED [None]
  - MEDICATION ERROR [None]
  - MUSCLE SPASMS [None]
